FAERS Safety Report 8851317 (Version 1)
Quarter: 2012Q4

REPORT INFORMATION
  Report Type: Report from Study
  Country: JP (occurrence: JP)
  Receive Date: 20121020
  Receipt Date: 20121020
  Transmission Date: 20130627
  Serious: Yes (Other)
  Sender: FDA-Public Use
  Company Number: JP-MERCK-1210JPN005547

PATIENT
  Age: 51 Year
  Sex: Male

DRUGS (11)
  1. PEGINTRON [Suspect]
     Indication: HEPATITIS C
     Dosage: 1.2 Microgram per kilogram, qw
     Route: 058
     Dates: start: 20120608, end: 20120615
  2. PEGINTRON [Suspect]
     Dosage: 1.5 Microgram per kilogram, qw
     Route: 058
     Dates: start: 20120622
  3. PEGINTRON [Suspect]
     Dosage: 1.5 Microgram per kilogram, UNK
     Route: 058
     Dates: start: 20120312, end: 20120525
  4. PEGINTRON [Suspect]
     Dosage: 1.5 Microgram per kilogram, UNK
     Route: 058
     Dates: start: 20120321, end: 20120601
  5. REBETOL [Suspect]
     Indication: HEPATITIS C
     Dosage: 600 mg, qd
     Route: 048
     Dates: start: 20120321, end: 20120614
  6. REBETOL [Suspect]
     Dosage: 400 mg, qd
     Route: 048
     Dates: start: 20120615, end: 20120805
  7. REBETOL [Suspect]
     Dosage: 600 mg, qd
     Route: 048
     Dates: start: 20120806, end: 20120906
  8. TELAVIC [Suspect]
     Indication: HEPATITIS C
     Dosage: 2250 mg, qd
     Route: 048
     Dates: start: 20120321, end: 20120614
  9. GASTER [Concomitant]
     Indication: PROPHYLAXIS
     Dosage: 40 mg, UNK
     Route: 048
     Dates: start: 20120322
  10. LENDORMIN D [Concomitant]
     Indication: PROPHYLAXIS
     Dosage: 0.25 mg, UNK
     Route: 048
     Dates: start: 20120323
  11. SALOBEL [Concomitant]
     Indication: HYPERURICAEMIA
     Dosage: 300 mg, UNK
     Route: 048
     Dates: start: 20120326

REACTIONS (1)
  - Platelet count decreased [Recovered/Resolved]
